FAERS Safety Report 6827561-7 (Version None)
Quarter: 2010Q3

REPORT INFORMATION
  Report Type: 
  Country: None (occurrence: None)
  Receive Date: 20100709
  Receipt Date: 20070119
  Transmission Date: 20110219
  Serious: No
  Sender: FDA-Public Use
  Company Number: US-PFIZER INC-2007006067

PATIENT
  Sex: Male
  Weight: 76.2 kg

DRUGS (3)
  1. CHANTIX [Suspect]
     Indication: SMOKING CESSATION THERAPY
     Dates: start: 20061201
  2. ADVAIR DISKUS 100/50 [Concomitant]
     Indication: ASTHMA
  3. MONTELUKAST SODIUM [Concomitant]
     Indication: ASTHMA

REACTIONS (1)
  - FLATULENCE [None]
